FAERS Safety Report 4395785-7 (Version None)
Quarter: 2004Q3

REPORT INFORMATION
  Report Type: 
  Country: None (occurrence: None)
  Receive Date: 20040707
  Receipt Date: 20040623
  Transmission Date: 20050211
  Serious: Yes (Hospitalization)
  Sender: FDA-Public Use
  Company Number: 2004220936FR

PATIENT
  Age: 61 Year
  Sex: Female
  Weight: 69 kg

DRUGS (6)
  1. EPIRUBICIN [Suspect]
     Indication: BREAST CANCER FEMALE
     Dosage: UNK, 6 CYCLES; IV
     Route: 042
     Dates: start: 20020702, end: 20021022
  2. FLUOROURACIL [Suspect]
     Indication: BREAST CANCER FEMALE
     Dosage: UNK, 6 CYCLES; IV
     Route: 042
     Dates: start: 20020702, end: 20021022
  3. CYCLOPHOSPHAMIDE [Suspect]
     Indication: BREAST CANCER FEMALE
     Dosage: UNK, 6 CYCLES; IV
     Route: 042
     Dates: start: 20020702, end: 20021022
  4. CLINICAL TRIAL PROCEDURE (CLINICAL TRIAL PROCEDURE) [Suspect]
     Indication: BREAST CANCER FEMALE
     Dosage: 50 GRAYS, CYCLIC, UNKNOWN
     Route: 065
     Dates: end: 20021213
  5. TAMOXIFEN [Concomitant]
  6. ANASTROZOLE [Concomitant]

REACTIONS (15)
  - ACUTE MYELOID LEUKAEMIA [None]
  - ASTHENIA [None]
  - BLOOD FIBRINOGEN INCREASED [None]
  - BONE MARROW DEPRESSION [None]
  - BRONCHITIS [None]
  - COUGH [None]
  - DIARRHOEA [None]
  - HERPES SIMPLEX [None]
  - PAIN IN EXTREMITY [None]
  - PYREXIA [None]
  - SYSTEMIC INFLAMMATORY RESPONSE SYNDROME [None]
  - THERAPY NON-RESPONDER [None]
  - THROMBOSIS [None]
  - VOMITING [None]
  - WEIGHT DECREASED [None]
